FAERS Safety Report 7973704-1 (Version None)
Quarter: 2011Q4

REPORT INFORMATION
  Report Type: 
  Country: None (occurrence: None)
  Receive Date: 20111213
  Receipt Date: 20111128
  Transmission Date: 20120403
  Serious: Yes (Hospitalization)
  Sender: FDA-Public Use
  Company Number: US-WATSON-2011-18643

PATIENT
  Age: 47 Year
  Sex: Male
  Weight: 52 kg

DRUGS (7)
  1. PROPOFOL [Suspect]
     Indication: ANAESTHESIA
  2. DROPERIDOL [Suspect]
     Indication: ANAESTHESIA
  3. FENTANYL-100 [Suspect]
     Indication: ANAESTHESIA
     Dosage: FENTANYL-BUPIVACAINE 0.125% AT 20 UG-HR (MINUS 1) (TOTAL OF 89 MG)
     Route: 008
  4. SEVOFLURANE [Suspect]
     Indication: ANAESTHESIA
  5. ATROPINE [Suspect]
     Indication: ANAESTHESIA
  6. VECURONIUM BROMIDE [Suspect]
     Indication: ANAESTHESIA
  7. NEOSTIGMINE [Suspect]
     Indication: ANAESTHESIA

REACTIONS (1)
  - ELECTROCARDIOGRAM ST SEGMENT ELEVATION [None]
